FAERS Safety Report 11790260 (Version 1)
Quarter: 2015Q4

REPORT INFORMATION
  Report Type: Report from Study
  Country: CA (occurrence: CA)
  Receive Date: 20151201
  Receipt Date: 20151201
  Transmission Date: 20160305
  Serious: Yes (Death)
  Sender: FDA-Public Use
  Company Number: CA-BIOGENIDEC-2015BI157677

PATIENT
  Age: 52 Year
  Sex: Female

DRUGS (2)
  1. FAMPYRA [Concomitant]
     Active Substance: DALFAMPRIDINE
     Indication: GAIT DISTURBANCE
     Route: 048
     Dates: start: 20120919, end: 20141204
  2. AVONEX [Suspect]
     Active Substance: INTERFERON BETA-1A
     Indication: MULTIPLE SCLEROSIS
     Route: 030
     Dates: start: 20080529, end: 20141204

REACTIONS (1)
  - Lung carcinoma cell type unspecified stage IV [Fatal]

NARRATIVE: CASE EVENT DATE: 20140101
